FAERS Safety Report 12647112 (Version 1)
Quarter: 2016Q3

REPORT INFORMATION
  Report Type: Spontaneous
  Country: US (occurrence: None)
  Receive Date: 20160811
  Receipt Date: 20160811
  Transmission Date: 20161109
  Serious: Yes (Other)
  Sender: FDA-Public Use
  Company Number: None

PATIENT
  Age: 77 Year
  Sex: Male
  Weight: 91 kg

DRUGS (1)
  1. BACTRIM DS [Suspect]
     Active Substance: SULFAMETHOXAZOLE\TRIMETHOPRIM
     Indication: WOUND INFECTION
     Route: 048
     Dates: start: 20160616, end: 20160621

REACTIONS (3)
  - Abnormal behaviour [None]
  - Delirium [None]
  - Confusional state [None]

NARRATIVE: CASE EVENT DATE: 20160620
